FAERS Safety Report 5191511-2 (Version None)
Quarter: 2006Q4

REPORT INFORMATION
  Report Type: 
  Country: None (occurrence: None)
  Receive Date: 20061219
  Receipt Date: 20061219
  Transmission Date: 20070319
  Serious: No
  Sender: FDA-Public Use
  Company Number: None

PATIENT
  Age: 42 Year
  Sex: Female
  Weight: 76.6579 kg

DRUGS (1)
  1. BETAMETHASONE SODIUM PHOSPHATE AND BETAMETHASONE ACETATE [Suspect]
     Indication: SINUSITIS
     Dosage: 1 CC  ONE  IM
     Route: 030
     Dates: start: 20061208

REACTIONS (8)
  - ERYTHEMA [None]
  - INJECTION SITE ERYTHEMA [None]
  - INJECTION SITE PAIN [None]
  - INJECTION SITE SWELLING [None]
  - INJECTION SITE WARMTH [None]
  - OEDEMA PERIPHERAL [None]
  - PAIN IN EXTREMITY [None]
  - SKIN WARM [None]
